FAERS Safety Report 13718740 (Version 2)
Quarter: 2017Q3

REPORT INFORMATION
  Report Type: Report from Study
  Country: FR (occurrence: FR)
  Receive Date: 20170705
  Receipt Date: 20170922
  Transmission Date: 20171127
  Serious: Yes (Other)
  Sender: FDA-Public Use
  Company Number: FR-SA-2017SA117303

PATIENT
  Age: 78 Year
  Sex: Female

DRUGS (3)
  1. ZELITREX [Concomitant]
     Active Substance: VALACYCLOVIR HYDROCHLORIDE
     Route: 065
     Dates: start: 20170320, end: 20170830
  2. WELLVONE [Concomitant]
     Active Substance: ATOVAQUONE
     Dosage: DOSE: 2 SPOONS/DAY
     Route: 065
     Dates: start: 20170320, end: 20170830
  3. CAMPATH [Suspect]
     Active Substance: ALEMTUZUMAB
     Indication: T-CELL PROLYMPHOCYTIC LEUKAEMIA
     Route: 041
     Dates: start: 20170320

REACTIONS (2)
  - Atrial fibrillation [Unknown]
  - Erysipelas [Recovered/Resolved]

NARRATIVE: CASE EVENT DATE: 20170503
